FAERS Safety Report 10917722 (Version 1)
Quarter: 2015Q1

REPORT INFORMATION
  Report Type: Spontaneous
  Country: ZA (occurrence: ZA)
  Receive Date: 20150316
  Receipt Date: 20150316
  Transmission Date: 20150721
  Serious: Yes (Life-Threatening, Hospitalization)
  Sender: FDA-Public Use
  Company Number: ZA-ABBVIE-15K-143-1340633-00

PATIENT
  Age: 67 Year
  Sex: Male
  Weight: 105 kg

DRUGS (11)
  1. FOLATE [Concomitant]
     Active Substance: FOLATE SODIUM
     Indication: PRODUCT USED FOR UNKNOWN INDICATION
  2. HUMIRA [Suspect]
     Active Substance: ADALIMUMAB
     Indication: PSORIATIC ARTHROPATHY
     Route: 058
     Dates: start: 20131205, end: 201406
  3. CATAFLAM [Concomitant]
     Active Substance: DICLOFENAC POTASSIUM
     Indication: PRODUCT USED FOR UNKNOWN INDICATION
     Dosage: 50 MILLIGRAM OR TWICE DAILY AS NECESSARY
  4. METHOTREXATE [Concomitant]
     Active Substance: METHOTREXATE
     Indication: DERMATITIS PSORIASIFORM
     Dosage: 17.5 MG WEEKLY
     Route: 048
     Dates: start: 201407
  5. PREXUM [Concomitant]
     Active Substance: PERINDOPRIL ERBUMINE
     Indication: PRODUCT USED FOR UNKNOWN INDICATION
  6. ALLOPURINOL. [Concomitant]
     Active Substance: ALLOPURINOL
     Indication: PRODUCT USED FOR UNKNOWN INDICATION
  7. SIMVASTATIN. [Concomitant]
     Active Substance: SIMVASTATIN
     Indication: PRODUCT USED FOR UNKNOWN INDICATION
  8. METHOTREXATE [Concomitant]
     Active Substance: METHOTREXATE
     Dosage: 12.5 MG WEEKLY
     Route: 048
     Dates: start: 201410, end: 201411
  9. DISPRIN CV [Concomitant]
     Indication: PRODUCT USED FOR UNKNOWN INDICATION
  10. VITAMIN D [Concomitant]
     Active Substance: CHOLECALCIFEROL
     Indication: PRODUCT USED FOR UNKNOWN INDICATION
  11. TOPZOLE [Concomitant]
     Indication: PRODUCT USED FOR UNKNOWN INDICATION

REACTIONS (9)
  - Femoral neck fracture [Recovering/Resolving]
  - Rash [Recovered/Resolved]
  - Arthropathy [Unknown]
  - Herpes zoster [Recovered/Resolved]
  - Renal cancer metastatic [Unknown]
  - Road traffic accident [Recovering/Resolving]
  - Metastases to lung [Unknown]
  - Tachycardia paroxysmal [Recovering/Resolving]
  - Abdominal lymphadenopathy [Unknown]

NARRATIVE: CASE EVENT DATE: 201411
